FAERS Safety Report 4785977-7 (Version None)
Quarter: 2005Q4

REPORT INFORMATION
  Report Type: 
  Country: None (occurrence: None)
  Receive Date: 20051003
  Receipt Date: 20050830
  Transmission Date: 20060501
  Serious: Yes (Hospitalization, Other)
  Sender: FDA-Public Use
  Company Number: PHBS2005JP12806

PATIENT
  Age: 0 Day
  Sex: Male
  Weight: 2 kg

DRUGS (7)
  1. SOLANAX [Suspect]
     Route: 064
  2. ROHYPNOL [Suspect]
     Route: 064
  3. NITRAZEPAM [Concomitant]
     Route: 064
  4. VEGETAMIN B [Concomitant]
     Route: 064
  5. TOFRANIL [Suspect]
     Route: 064
  6. ANAFRANIL [Suspect]
     Route: 064
  7. MERISLON [Concomitant]

REACTIONS (13)
  - CONGENITAL LIMB HYPEREXTENSION [None]
  - CONVULSION NEONATAL [None]
  - DRUG EXPOSURE DURING PREGNANCY [None]
  - DRUG EXPOSURE VIA BREAST MILK [None]
  - DRUG WITHDRAWAL SYNDROME NEONATAL [None]
  - FEEDING DISORDER NEONATAL [None]
  - GAZE PALSY [None]
  - HYPERTONIA NEONATAL [None]
  - IRRITABILITY [None]
  - NEONATAL DISORDER [None]
  - RESTLESSNESS [None]
  - TREMOR [None]
  - WHEEZING [None]
